FAERS Safety Report 10066311 (Version 1)
Quarter: 2014Q2

REPORT INFORMATION
  Report Type: Spontaneous
  Country: US (occurrence: US)
  Receive Date: 20140408
  Receipt Date: 20140408
  Transmission Date: 20141212
  Serious: No
  Sender: FDA-Public Use
  Company Number: US-PFIZER INC-2014096260

PATIENT
  Sex: Male

DRUGS (2)
  1. LYRICA [Suspect]
     Indication: NEUROPATHY PERIPHERAL
     Dosage: 50 MG, UNK
     Dates: start: 201312
  2. LYRICA [Suspect]
     Dosage: 75 MG, UNK
     Dates: end: 201403

REACTIONS (3)
  - Drug ineffective [Unknown]
  - Pain [Unknown]
  - Vitamin D decreased [Unknown]
